FAERS Safety Report 7071222-9 (Version None)
Quarter: 2010Q4

REPORT INFORMATION
  Report Type: 
  Country: None (occurrence: None)
  Receive Date: 20101029
  Receipt Date: 20101025
  Transmission Date: 20110411
  Serious: No
  Sender: FDA-Public Use
  Company Number: US-RB-022784-09

PATIENT
  Age: 40 Year
  Sex: Male

DRUGS (4)
  1. SUBOXONE [Suspect]
     Indication: DRUG DEPENDENCE
     Route: 060
     Dates: start: 20070101
  2. ALCOHOL [Suspect]
     Indication: PRODUCT USED FOR UNKNOWN INDICATION
     Dosage: UNKNOWN DOSING DETAILS
     Route: 065
  3. ALCOHOL [Suspect]
     Dosage: UNKNOWN DOSING DETAILS
     Route: 065
  4. CELEXA [Interacting]
     Indication: DEPRESSION
     Dosage: DOSING INFORMATION UNKNOWN
     Route: 048
     Dates: end: 20090901

REACTIONS (23)
  - APATHY [None]
  - ASTHENIA [None]
  - CRYING [None]
  - DECREASED APPETITE [None]
  - DEPRESSION [None]
  - DISTURBANCE IN ATTENTION [None]
  - DRUG ABUSE [None]
  - DRUG INEFFECTIVE [None]
  - DYSARTHRIA [None]
  - FEELING ABNORMAL [None]
  - HEPATIC ENZYME INCREASED [None]
  - HEPATITIS [None]
  - HYPERHIDROSIS [None]
  - INSOMNIA [None]
  - LIBIDO DECREASED [None]
  - MALAISE [None]
  - NAUSEA [None]
  - PRURITUS GENERALISED [None]
  - SOMNOLENCE [None]
  - STRESS [None]
  - TREMOR [None]
  - WEIGHT DECREASED [None]
  - YAWNING [None]
